FAERS Safety Report 4959978-X (Version None)
Quarter: 2006Q1

REPORT INFORMATION
  Report Type: 
  Country: None (occurrence: None)
  Receive Date: 20060331
  Receipt Date: 20050412
  Transmission Date: 20060701
  Serious: Yes (Hospitalization, Other)
  Sender: FDA-Public Use
  Company Number: US-MERCK-0504USA02142

PATIENT
  Age: 74 Year
  Sex: Male
  Weight: 91 kg

DRUGS (1)
  1. VIOXX [Suspect]
     Indication: KNEE OPERATION
     Route: 048
     Dates: start: 20010618, end: 20010715

REACTIONS (24)
  - ARTHROPATHY [None]
  - ASTHMA [None]
  - BENIGN PROSTATIC HYPERPLASIA [None]
  - CEREBROVASCULAR ACCIDENT [None]
  - CHEST PAIN [None]
  - CHRONIC OBSTRUCTIVE PULMONARY DISEASE [None]
  - CHRONIC SINUSITIS [None]
  - CORONARY ARTERY DISEASE [None]
  - DIARRHOEA [None]
  - DYSPNOEA [None]
  - HAEMATURIA [None]
  - HEART VALVE INSUFFICIENCY [None]
  - HYDRONEPHROSIS [None]
  - INSOMNIA [None]
  - MYOCARDIAL INFARCTION [None]
  - NEPHROLITHIASIS [None]
  - ORGAN FAILURE [None]
  - PALPITATIONS [None]
  - PULMONARY EMBOLISM [None]
  - PYREXIA [None]
  - RENAL DISORDER [None]
  - RENAL MASS [None]
  - THROMBOSIS [None]
  - VENTRICULAR DYSFUNCTION [None]
